FAERS Safety Report 18416227 (Version 3)
Quarter: 2020Q4

REPORT INFORMATION
  Report Type: Report from Study
  Country: US (occurrence: US)
  Receive Date: 20201022
  Receipt Date: 20201203
  Transmission Date: 20210114
  Serious: No
  Sender: FDA-Public Use
  Company Number: US-EUSA PHARMA (NETHERLANDS) B.V.-2020US000238

PATIENT
  Age: 47 Year
  Sex: Male
  Weight: 118.6 kg

DRUGS (2)
  1. SILTUXIMAB [Suspect]
     Active Substance: SILTUXIMAB
     Indication: CASTLEMAN^S DISEASE
     Dosage: UNK
     Route: 065
     Dates: start: 20191030
  2. PREDNISONE. [Concomitant]
     Active Substance: PREDNISONE
     Indication: SUPPORTIVE CARE
     Dosage: UNK
     Route: 065
     Dates: start: 20191023, end: 20200212

REACTIONS (3)
  - Nausea [Recovered/Resolved]
  - Rash [Recovered/Resolved]
  - Vomiting [Recovered/Resolved]

NARRATIVE: CASE EVENT DATE: 20200102
